FAERS Safety Report 4424060-7 (Version None)
Quarter: 2004Q3

REPORT INFORMATION
  Report Type: 
  Country: None (occurrence: None)
  Receive Date: 20040805
  Receipt Date: 20040726
  Transmission Date: 20050211
  Serious: Yes (Hospitalization)
  Sender: FDA-Public Use
  Company Number: 104874ISR

PATIENT
  Age: 13 Year
  Sex: Female

DRUGS (6)
  1. ETOPOSIDE [Suspect]
     Indication: OVARIAN CANCER
     Dosage: 135 MILLIGRAM INTRAVENOUS NOS
     Route: 042
     Dates: start: 20040527
  2. CISPLATIN [Suspect]
     Indication: OVARIAN CANCER
     Dosage: 27 MILLIGRAM INTRAVENOUS NOS
     Route: 042
     Dates: start: 20040527
  3. BLEOMYCIN [Suspect]
     Indication: OVARIAN CANCER
     Dosage: 30 MILLIGRAM, INTRAVENOUS NOS
     Route: 042
     Dates: start: 20040527
  4. CHLORPROMAZINE [Suspect]
  5. METHYLPREDNISOLONE [Concomitant]
  6. ONDANSETRON HCL [Concomitant]

REACTIONS (7)
  - BLOOD CALCIUM DECREASED [None]
  - BLOOD CHLORIDE INCREASED [None]
  - BLOOD CREATININE DECREASED [None]
  - BLOOD UREA DECREASED [None]
  - DISTURBANCE IN ATTENTION [None]
  - HYPONATRAEMIA [None]
  - INCOHERENT [None]
